FAERS Safety Report 8514509-2 (Version None)
Quarter: 2012Q3

REPORT INFORMATION
  Report Type: 
  Country: None (occurrence: None)
  Receive Date: 20120717
  Receipt Date: 20120713
  Transmission Date: 20120928
  Serious: Yes (Hospitalization, Disabling, Other)
  Sender: FDA-Public Use
  Company Number: US-PFIZER INC-2011070815

PATIENT
  Sex: Female

DRUGS (9)
  1. EFFEXOR [Concomitant]
     Indication: ANXIETY
     Dosage: UNK
     Dates: start: 20060101, end: 20090101
  2. DIAZEPAM [Concomitant]
     Indication: PANIC ATTACK
  3. DIAZEPAM [Concomitant]
     Indication: ANXIETY
  4. RISPERDAL [Concomitant]
     Indication: HALLUCINATION, AUDITORY
     Dosage: UNK
     Dates: start: 20060101, end: 20090101
  5. ALBUTEROL [Concomitant]
     Indication: ASTHMA
     Dosage: UNK
     Dates: start: 20000101
  6. RISPERDAL [Concomitant]
     Indication: BIPOLAR DISORDER
  7. CHANTIX [Suspect]
     Indication: SMOKING CESSATION THERAPY
     Dosage: 0.5 MG, UNK
     Dates: start: 20090307, end: 20090407
  8. DIAZEPAM [Concomitant]
     Indication: POST-TRAUMATIC STRESS DISORDER
     Dosage: UNK
     Dates: start: 20000101, end: 20090101
  9. EFFEXOR [Concomitant]
     Indication: DEPRESSION

REACTIONS (13)
  - DEPRESSION [None]
  - POST-TRAUMATIC STRESS DISORDER [None]
  - AMNESIA [None]
  - SUICIDE ATTEMPT [None]
  - BIPOLAR DISORDER [None]
  - LOSS OF CONSCIOUSNESS [None]
  - HALLUCINATION [None]
  - ANXIETY [None]
  - INSOMNIA [None]
  - PANIC ATTACK [None]
  - CONVULSION [None]
  - MENTAL DISORDER [None]
  - NIGHTMARE [None]
